FAERS Safety Report 4429424-3 (Version None)
Quarter: 2004Q3

REPORT INFORMATION
  Report Type: 
  Country: None (occurrence: None)
  Receive Date: 20040816
  Receipt Date: 20040803
  Transmission Date: 20050211
  Serious: Yes (Hospitalization)
  Sender: FDA-Public Use
  Company Number: 2004047499

PATIENT
  Age: 74 Year
  Sex: Female

DRUGS (2)
  1. NORVASC [Suspect]
     Indication: HYPERTENSION
     Dosage: 5 MG (5 MG, 1 IN D), ORAL
     Route: 048
     Dates: start: 20030101, end: 20040703
  2. FAMOTIDINE [Concomitant]

REACTIONS (8)
  - AGRANULOCYTOSIS [None]
  - ALANINE AMINOTRANSFERASE INCREASED [None]
  - ASPARTATE AMINOTRANSFERASE INCREASED [None]
  - BLOOD BILIRUBIN INCREASED [None]
  - HEPATIC FUNCTION ABNORMAL [None]
  - HEPATITIS B CORE ANTIGEN POSITIVE [None]
  - INFECTION [None]
  - WHITE BLOOD CELL COUNT INCREASED [None]
